FAERS Safety Report 13770551 (Version 1)
Quarter: 2017Q3

REPORT INFORMATION
  Report Type: Spontaneous
  Country: US (occurrence: US)
  Receive Date: 20170719
  Receipt Date: 20170719
  Transmission Date: 20171127
  Serious: Yes (Life-Threatening)
  Sender: FDA-Public Use
  Company Number: None

PATIENT
  Age: 49 Year
  Sex: Male
  Weight: 112.5 kg

DRUGS (18)
  1. MINERAL SUPPLEMENTS [Concomitant]
     Active Substance: MINERALS
  2. MAGNESIUM [Concomitant]
     Active Substance: MAGNESIUM
  3. FOLIC ACID. [Concomitant]
     Active Substance: FOLIC ACID
  4. VITAMIN E [Concomitant]
     Active Substance: .ALPHA.-TOCOPHEROL
  5. POTASSIUM [Concomitant]
     Active Substance: POTASSIUM
  6. ZINC. [Concomitant]
     Active Substance: ZINC
  7. MSM POWDER [Concomitant]
  8. B1 [Concomitant]
  9. LOSARTAN 100 MG [Suspect]
     Active Substance: LOSARTAN
     Indication: HYPERTENSION
     Dosage: ?          OTHER STRENGTH:MG;QUANTITY:1 TABLET(S);?
     Route: 048
     Dates: start: 20130701, end: 20170713
  10. B6 [Concomitant]
     Active Substance: PYRIDOXINE HYDROCHLORIDE
  11. CARVEDILOL. [Concomitant]
     Active Substance: CARVEDILOL
  12. FULIC ACID WITH TRACE MINERALS [Concomitant]
  13. BORON [Concomitant]
     Active Substance: BORON
  14. VITAMIN C [Concomitant]
     Active Substance: ASCORBIC ACID
  15. VITAMIN SUPPLEMENTS [Concomitant]
     Active Substance: VITAMINS
  16. VITAMIN K CALCIUM [Concomitant]
  17. VITAMIN B12 [Concomitant]
     Active Substance: CYANOCOBALAMIN
  18. CPAP [Concomitant]
     Active Substance: DEVICE

REACTIONS (7)
  - Bursitis [None]
  - Joint swelling [None]
  - Diabetes mellitus [None]
  - Platelet disorder [None]
  - Ligament rupture [None]
  - Gait disturbance [None]
  - Tendon discomfort [None]

NARRATIVE: CASE EVENT DATE: 20170709
